FAERS Safety Report 19390341 (Version 6)
Quarter: 2024Q4

REPORT INFORMATION
  Report Type: Spontaneous
  Country: US (occurrence: US)
  Receive Date: 20210608
  Receipt Date: 20241225
  Transmission Date: 20250115
  Serious: Yes (Other)
  Sender: SANOFI AVENTIS
  Company Number: US-SANOFI-00616835

PATIENT
  Age: 76 Year
  Sex: Female

DRUGS (4)
  1. LANTUS SOLOSTAR [Suspect]
     Active Substance: INSULIN GLARGINE
     Indication: Type 2 diabetes mellitus
     Dosage: 12 IU, QD
     Route: 065
     Dates: start: 1984
  2. LANTUS SOLOSTAR [Suspect]
     Active Substance: INSULIN GLARGINE
     Dosage: 25 IU, QD
     Route: 065
  3. IRON [Concomitant]
     Active Substance: IRON
     Dosage: UNK
  4. FOLIC ACID [Concomitant]
     Active Substance: FOLIC ACID
     Dosage: UNK

REACTIONS (26)
  - Myocardial infarction [Unknown]
  - Diverticulitis [Unknown]
  - Sarcoma [Unknown]
  - Cataract [Unknown]
  - Neoplasm malignant [Unknown]
  - Spinal operation [Unknown]
  - Cardiac operation [Unknown]
  - Coronary artery bypass [Unknown]
  - Eye disorder [Unknown]
  - Infection [Unknown]
  - Nausea [Unknown]
  - Malaise [Unknown]
  - Irritability [Unknown]
  - Cardiac disorder [Unknown]
  - Constipation [Unknown]
  - Abdominal discomfort [Unknown]
  - Anaemia [Unknown]
  - Abdominal pain upper [Unknown]
  - Headache [Unknown]
  - Weight decreased [Recovering/Resolving]
  - Injection site haemorrhage [Not Recovered/Not Resolved]
  - Injection site pain [Unknown]
  - Injection site swelling [Unknown]
  - Blood glucose increased [Not Recovered/Not Resolved]
  - Glycosylated haemoglobin increased [Recovering/Resolving]
  - Device mechanical issue [Unknown]

NARRATIVE: CASE EVENT DATE: 20210408
